FAERS Safety Report 7051808-8 (Version None)
Quarter: 2010Q4

REPORT INFORMATION
  Report Type: 
  Country: None (occurrence: None)
  Receive Date: 20101019
  Receipt Date: 20101011
  Transmission Date: 20110411
  Serious: Yes (Hospitalization)
  Sender: FDA-Public Use
  Company Number: GB-NAPPMUNDI-GBR-2010-0007050

PATIENT
  Age: 44 Year
  Sex: Female
  Weight: 51 kg

DRUGS (4)
  1. MORPHINE SULFATE CR CAPSULE DAILY 30MG [Suspect]
     Indication: PAIN
     Dosage: 30 MG, UNK
     Route: 048
     Dates: start: 20100801
  2. IPILIMUMAB [Suspect]
     Indication: MALIGNANT MELANOMA
     Dosage: 150 MG, UNK
     Route: 042
     Dates: start: 20100817
  3. LACTULOSE [Concomitant]
  4. ORAMORPH SR [Concomitant]

REACTIONS (1)
  - CONSTIPATION [None]
